FAERS Safety Report 8841451 (Version 3)
Quarter: 2012Q4

REPORT INFORMATION
  Report Type: 
  Country: US (occurrence: US)
  Receive Date: 20121016
  Receipt Date: 20121220
  Transmission Date: 20130627
  Serious: Yes (Other)
  Sender: FDA-Public Use
  Company Number: US-BIOGENIDEC-2012BI044694

PATIENT
  Age: 47 Year
  Sex: Female

DRUGS (3)
  1. TYSABRI [Suspect]
     Indication: MULTIPLE SCLEROSIS
     Route: 042
     Dates: start: 20120220
  2. IRON SUPPLEMENT [Concomitant]
     Indication: BLOOD IRON DECREASED
  3. LOSARTAN [Concomitant]
     Indication: HYPERTENSION

REACTIONS (1)
  - Gastric bypass [Recovered/Resolved]
